FAERS Safety Report 12857661 (Version 2)
Quarter: 2016Q4

REPORT INFORMATION
  Report Type: Report from Study
  Country: CA (occurrence: CA)
  Receive Date: 20161018
  Receipt Date: 20161229
  Transmission Date: 20170207
  Serious: Yes (Hospitalization, Other)
  Sender: FDA-Public Use
  Company Number: CA-INCYTE CORPORATION-2016IN005555

PATIENT
  Age: 84 Year
  Sex: Male

DRUGS (2)
  1. JAKAVI [Suspect]
     Active Substance: RUXOLITINIB
     Indication: MYELOFIBROSIS
     Dosage: 20 MG, BID
     Route: 048
     Dates: start: 201607
  2. HYDREA [Concomitant]
     Active Substance: HYDROXYUREA
     Indication: PRODUCT USED FOR UNKNOWN INDICATION
     Route: 065

REACTIONS (10)
  - Cardiac failure congestive [Unknown]
  - Ophthalmic herpes zoster [Unknown]
  - Pruritus [Unknown]
  - Contusion [Unknown]
  - Skin ulcer [Unknown]
  - Herpes zoster [Unknown]
  - Platelet count increased [Unknown]
  - Anaemia [Unknown]
  - Peripheral swelling [Unknown]
  - Contusion [Recovered/Resolved]

NARRATIVE: CASE EVENT DATE: 20160906
